FAERS Safety Report 7190251-8 (Version None)
Quarter: 2010Q4

REPORT INFORMATION
  Report Type: 
  Country: None (occurrence: None)
  Receive Date: 20101223
  Receipt Date: 20101214
  Transmission Date: 20110411
  Serious: Yes (Hospitalization)
  Sender: FDA-Public Use
  Company Number: US-B.I. PHARMACEUTICALS,INC./RIDGEFIELD-2010-BP-14539BP

PATIENT
  Sex: Female

DRUGS (21)
  1. PRADAXA [Suspect]
     Dosage: 150 MG
     Route: 048
     Dates: start: 20101201
  2. LIPITOR [Concomitant]
     Indication: BLOOD CHOLESTEROL INCREASED
     Dosage: 80 MG
     Route: 048
  3. FISH OIL [Concomitant]
     Indication: PROPHYLAXIS
     Dosage: 1000 MG
     Route: 048
  4. VITAMIN E [Concomitant]
     Indication: PROPHYLAXIS
     Dosage: 400 U
     Route: 048
  5. PRAMIPEXOLE [Concomitant]
     Indication: RESTLESS LEGS SYNDROME
     Dosage: 1.5 MG
     Route: 048
  6. BYSTOLIC [Concomitant]
     Indication: GASTRIC DISORDER
     Dosage: 10 MG
     Route: 048
  7. VITAMIN D [Concomitant]
     Indication: PROPHYLAXIS
     Dosage: 400 U
     Route: 048
  8. OXYBUTYNIN [Concomitant]
     Indication: URINARY INCONTINENCE
     Dosage: 15 MG
     Route: 048
  9. NIASPAN [Concomitant]
     Indication: BLOOD CHOLESTEROL INCREASED
     Dosage: 1000 MG
     Route: 048
  10. ONGLYZA [Concomitant]
     Indication: DIABETES MELLITUS
     Dosage: 2.5 MG
     Route: 048
  11. MULTAQ [Concomitant]
     Indication: CARDIAC DISORDER
     Dosage: 400 MG
     Route: 048
  12. PLAVIX [Concomitant]
     Indication: PERIPHERAL VASCULAR DISORDER
     Dosage: 75 MG
     Route: 048
  13. FAMOTIDINE [Concomitant]
     Indication: GASTRIC DISORDER
     Dosage: 40 MG
     Route: 048
  14. NITROGLYCERIN [Concomitant]
     Indication: CARDIAC DISORDER
     Dosage: 0.1 MG
  15. SPIRONOLACTONE [Concomitant]
     Dosage: 50 MG
     Route: 048
     Dates: end: 20101212
  16. FUROSEMIDE [Concomitant]
     Indication: FLUID RETENTION
     Dosage: 80 MG
     Route: 048
     Dates: end: 20101212
  17. METOLAZONE [Concomitant]
     Route: 048
     Dates: end: 20101212
  18. ALBUTEROL [Concomitant]
     Indication: DYSPNOEA
     Dates: end: 20101212
  19. ALBUTEROL [Concomitant]
     Indication: LUNG DISORDER
  20. FLOVENT [Concomitant]
     Indication: DYSPNOEA
     Dates: end: 20101212
  21. FLOVENT [Concomitant]
     Indication: LUNG DISORDER

REACTIONS (8)
  - ASTHENIA [None]
  - BACK PAIN [None]
  - BLOOD POTASSIUM DECREASED [None]
  - BRONCHITIS [None]
  - DEHYDRATION [None]
  - DIZZINESS [None]
  - HYPOAESTHESIA [None]
  - MALAISE [None]
